FAERS Safety Report 7087384-3 (Version None)
Quarter: 2010Q4

REPORT INFORMATION
  Report Type: 
  Country: None (occurrence: None)
  Receive Date: 20101108
  Receipt Date: 20101028
  Transmission Date: 20110411
  Serious: Yes (Hospitalization)
  Sender: FDA-Public Use
  Company Number: US-BIOGENIDEC-2010BI038008

PATIENT
  Age: 55 Year
  Sex: Female

DRUGS (2)
  1. AVONEX [Suspect]
     Indication: MULTIPLE SCLEROSIS
     Route: 030
     Dates: start: 20090219, end: 20100731
  2. REBIF [Concomitant]
     Dates: start: 20100601

REACTIONS (3)
  - CHEMICAL POISONING [None]
  - HALLUCINATION [None]
  - LOWER LIMB FRACTURE [None]
